FAERS Safety Report 5448014-7 (Version None)
Quarter: 2007Q3

REPORT INFORMATION
  Report Type: 
  Country: None (occurrence: None)
  Receive Date: 20070910
  Receipt Date: 20070829
  Transmission Date: 20080115
  Serious: Yes (Other)
  Sender: FDA-Public Use
  Company Number: US-PFIZER INC-2007072740

PATIENT
  Sex: Female
  Weight: 79.4 kg

DRUGS (10)
  1. GABAPENTIN [Suspect]
     Indication: NEURALGIA
  2. XALATAN [Suspect]
     Indication: OCULAR HYPERTENSION
     Route: 047
  3. SIMVASTATIN [Concomitant]
  4. ASPIRIN [Concomitant]
  5. GLUCOSAMINE [Concomitant]
  6. ATENOLOL [Concomitant]
  7. ASCORBIC ACID [Concomitant]
  8. VITAMIN E [Concomitant]
  9. AMBIEN [Concomitant]
  10. KETOTIFEN FUMARATE [Concomitant]
     Indication: HYPERSENSITIVITY

REACTIONS (4)
  - DRUG INEFFECTIVE [None]
  - INCORRECT DRUG ADMINISTRATION DURATION [None]
  - LOWER RESPIRATORY TRACT INFECTION [None]
  - WHEEZING [None]
